FAERS Safety Report 6775582-5 (Version None)
Quarter: 2010Q2

REPORT INFORMATION
  Report Type: 
  Country: None (occurrence: None)
  Receive Date: 20100617
  Receipt Date: 20100607
  Transmission Date: 20101027
  Serious: Yes (Other)
  Sender: FDA-Public Use
  Company Number: US-JNJCH-2010013992

PATIENT
  Age: 12 Year
  Sex: Female

DRUGS (1)
  1. CHILDREN'S BENADRYL ALLERGY [Suspect]
     Indication: DRUG USE FOR UNKNOWN INDICATION
     Dosage: TEXT:THREE TABLETS ONE TIME
     Route: 048
     Dates: start: 20100607, end: 20100607

REACTIONS (1)
  - PHARYNGEAL HYPOAESTHESIA [None]
